FAERS Safety Report 8044279 (Version 8)
Quarter: 2013Q4

REPORT INFORMATION
  Report Type: Report from Study
  Country: US (occurrence: US)
  Receive Date: 20110719
  Receipt Date: 20131204
  Transmission Date: 20140711
  Serious: Yes (Other)
  Sender: FDA-Public Use
  Company Number: US-PFIZER INC-2011149747

PATIENT
  Age: 68 Year
  Sex: Female
  Weight: 53.97 kg

DRUGS (12)
  1. DETROL LA [Suspect]
     Indication: HYPERTONIC BLADDER
     Dosage: UNK
     Dates: start: 201007
  2. DETROL LA [Suspect]
     Indication: CYSTITIS INTERSTITIAL
     Dosage: 4 MG, 2X/DAY
  3. DETROL LA [Suspect]
     Dosage: UNK
  4. DITROPAN [Suspect]
     Indication: HYPERTONIC BLADDER
     Dosage: UNK
  5. VESICARE [Suspect]
     Indication: HYPERTONIC BLADDER
     Dosage: UNK
  6. SYNTHROID [Concomitant]
     Indication: HORMONE THERAPY
     Dosage: 125 UG, DAILY
  7. PROZAC [Concomitant]
     Indication: DEPRESSION
     Dosage: UNK
  8. FIORICET [Concomitant]
     Indication: PAIN
     Dosage: UNK
  9. NASAL SALINE [Concomitant]
     Dosage: UNK
  10. NEXIUM [Concomitant]
     Indication: GASTROENTERITIS
     Dosage: 40 MG, DAILY IN THE MORNING
  11. AMBIEN [Concomitant]
     Dosage: 10 MG, UNK
  12. URIBEL [Concomitant]
     Indication: BURNING SENSATION
     Dosage: UNK,4X/DAY

REACTIONS (16)
  - Cystitis [Not Recovered/Not Resolved]
  - Sinusitis [Not Recovered/Not Resolved]
  - Concussion [Unknown]
  - Corneal abrasion [Unknown]
  - Heart rate increased [Unknown]
  - Bladder pain [Unknown]
  - Pain [Unknown]
  - Fall [Unknown]
  - Back injury [Unknown]
  - Bladder disorder [Unknown]
  - Dizziness [Unknown]
  - Headache [Not Recovered/Not Resolved]
  - Dyspepsia [Not Recovered/Not Resolved]
  - Constipation [Unknown]
  - Dry eye [Not Recovered/Not Resolved]
  - Off label use [Unknown]
